FAERS Safety Report 26008564 (Version 1)
Quarter: 2025Q4

REPORT INFORMATION
  Report Type: Spontaneous
  Country: EU (occurrence: EU)
  Receive Date: 20251106
  Receipt Date: 20251106
  Transmission Date: 20260117
  Serious: Yes (Other)
  Sender: SANDOZ
  Company Number: EU-SANDOZ-SDZ2025FR077790

PATIENT
  Age: 62 Year
  Sex: Female
  Weight: 83 kg

DRUGS (5)
  1. AMLODIPINE [Suspect]
     Active Substance: AMLODIPINE BESYLATE
     Indication: Hypertension
     Dosage: 1 DF, QD, 1 IN THE MORNING, STRENGTH: 5MG, START DATE: 09-SEP-2024
     Route: 048
  2. ERELZI [Suspect]
     Active Substance: ETANERCEPT-SZZS
     Indication: Rheumatoid arthritis
     Dosage: UNK, QW, 1 INJECTION PER WEEK
     Route: 065
     Dates: start: 20250721, end: 20251025
  3. ERELZI [Suspect]
     Active Substance: ETANERCEPT-SZZS
     Dosage: UNK, QW, 1 INJECTION PER WEEK, ROUTE: INJECTABLE
     Route: 065
     Dates: start: 20250721, end: 20251025
  4. HYDROCHLOROTHIAZIDE\TELMISARTAN [Suspect]
     Active Substance: HYDROCHLOROTHIAZIDE\TELMISARTAN
     Indication: Hypertension
     Dosage: 1 DF, QD, 1 IN THE MORNING, STRENGTH:80/25 MG, START DATE: 27-MAR-2014
     Route: 048
  5. KETOPROFEN [Suspect]
     Active Substance: KETOPROFEN
     Indication: Arthralgia
     Dosage: UNK, STRENGTH:100 MG ,1 IN THE MORNING  AND IN THE EVENING, START DATE: 25-SEP-2025
     Route: 048
     Dates: end: 20250930

REACTIONS (4)
  - Oedema peripheral [Unknown]
  - Arthritis [Unknown]
  - Arthralgia [Unknown]
  - Joint swelling [Unknown]

NARRATIVE: CASE EVENT DATE: 20250701
